FAERS Safety Report 9472475 (Version 2)
Quarter: 2013Q3

REPORT INFORMATION
  Report Type: Spontaneous
  Country: JP (occurrence: JP)
  Receive Date: 20130823
  Receipt Date: 20130904
  Transmission Date: 20140515
  Serious: Yes (Hospitalization)
  Sender: FDA-Public Use
  Company Number: JP-NOVOPROD-385649

PATIENT
  Age: 35 Year
  Sex: Female

DRUGS (4)
  1. NOVOLIN R CHU FLEXPEN [Suspect]
     Indication: TYPE 1 DIABETES MELLITUS
     Dosage: UNK
     Route: 058
  2. NOVOLIN R CHU FLEXPEN [Suspect]
     Dosage: 100 IU, QD
     Route: 058
     Dates: start: 20130810
  3. LANTUS [Suspect]
     Indication: TYPE 1 DIABETES MELLITUS
     Dosage: UNK
     Route: 058
  4. LANTUS [Suspect]
     Dosage: 100 IU, QD
     Route: 058
     Dates: start: 20130810

REACTIONS (3)
  - Suicide attempt [Unknown]
  - Intentional overdose [Unknown]
  - Hypoglycaemia [Recovering/Resolving]
